FAERS Safety Report 5366954-4 (Version None)
Quarter: 2007Q2

REPORT INFORMATION
  Report Type: 
  Country: None (occurrence: None)
  Receive Date: 20070622
  Receipt Date: 20070615
  Transmission Date: 20071010
  Serious: Yes (Disabling)
  Sender: FDA-Public Use
  Company Number: FRWYE696329NOV06

PATIENT
  Age: 33 Year
  Sex: Female

DRUGS (2)
  1. MICROVAL [Suspect]
     Indication: CONTRACEPTION
     Dosage: UNKNOWN
     Route: 048
     Dates: end: 20060613
  2. TRACLEER [Interacting]
     Route: 048

REACTIONS (3)
  - DRUG INEFFECTIVE [None]
  - DRUG INTERACTION [None]
  - UNINTENDED PREGNANCY [None]
